FAERS Safety Report 6565551-2 (Version None)
Quarter: 2010Q1

REPORT INFORMATION
  Report Type: 
  Country: None (occurrence: None)
  Receive Date: 20100201
  Receipt Date: 20100121
  Transmission Date: 20100710
  Serious: Yes (Other)
  Sender: FDA-Public Use
  Company Number: BR-JNJFOC-20100111800

PATIENT
  Age: 45 Day
  Sex: Female

DRUGS (1)
  1. MYLICON GOTAS [Suspect]
     Indication: FLATULENCE
     Route: 048

REACTIONS (3)
  - CONSTIPATION [None]
  - DYSPNOEA [None]
  - VOMITING [None]
